FAERS Safety Report 10059269 (Version 1)
Quarter: 2014Q2

REPORT INFORMATION
  Report Type: Spontaneous
  Country: US (occurrence: US)
  Receive Date: 20140404
  Receipt Date: 20140404
  Transmission Date: 20141212
  Serious: Yes (Other)
  Sender: FDA-Public Use
  Company Number: US-PFIZER INC-2014093915

PATIENT
  Age: 58 Year
  Sex: Female

DRUGS (1)
  1. XELJANZ [Suspect]
     Dosage: 5 MG, 2X/DAY
     Dates: start: 201312

REACTIONS (3)
  - Arthropathy [Unknown]
  - Red blood cell sedimentation rate increased [Unknown]
  - C-reactive protein increased [Unknown]
